FAERS Safety Report 22936425 (Version 5)
Quarter: 2024Q4

REPORT INFORMATION
  Report Type: Spontaneous
  Country: SI (occurrence: SI)
  Receive Date: 20230912
  Receipt Date: 20241122
  Transmission Date: 20250115
  Serious: Yes (Other)
  Sender: ALEXION PHARMACEUTICALS
  Company Number: 2023A204753

PATIENT
  Age: 63 Year

DRUGS (46)
  1. FULVESTRANT [Suspect]
     Active Substance: FULVESTRANT
     Indication: Product used for unknown indication
     Dosage: 500 MG, Q4W, FREQUENCY: Q4WK
  2. FULVESTRANT [Suspect]
     Active Substance: FULVESTRANT
     Dosage: 500 MG, Q4W, FREQUENCY: Q4WK
  3. FULVESTRANT [Suspect]
     Active Substance: FULVESTRANT
     Dosage: 500 MG, Q4W, FREQUENCY: Q4WK
  4. FULVESTRANT [Suspect]
     Active Substance: FULVESTRANT
     Dosage: 500 MG, Q4W, FREQUENCY: Q4WK
  5. ZOLEDRONIC ACID [Suspect]
     Active Substance: ZOLEDRONIC ACID
     Dosage: 4 MG, Q3MO
  6. ZOLEDRONIC ACID [Suspect]
     Active Substance: ZOLEDRONIC ACID
     Dosage: 4 MG, Q3MO
  7. ZOLEDRONIC ACID [Suspect]
     Active Substance: ZOLEDRONIC ACID
     Dosage: 4 MG, Q3MO
  8. ZOLEDRONIC ACID [Suspect]
     Active Substance: ZOLEDRONIC ACID
     Dosage: 4 MG, Q3MO
  9. ZOLEDRONIC ACID [Suspect]
     Active Substance: ZOLEDRONIC ACID
     Dosage: 4 MG, Q3MO
  10. ZOLEDRONIC ACID [Suspect]
     Active Substance: ZOLEDRONIC ACID
     Dosage: 4 MG, Q3MO
  11. ZOLEDRONIC ACID [Suspect]
     Active Substance: ZOLEDRONIC ACID
     Dosage: 4 MG, Q3MO
     Route: 065
  12. ZOLEDRONIC ACID [Suspect]
     Active Substance: ZOLEDRONIC ACID
     Dosage: 4 MG, Q3MO
     Route: 065
  13. ZOLEDRONIC ACID [Suspect]
     Active Substance: ZOLEDRONIC ACID
     Dosage: 4 MG/3 MONTHS
  14. ZOLEDRONIC ACID [Suspect]
     Active Substance: ZOLEDRONIC ACID
     Dosage: 4 MG/3 MONTHS
     Route: 065
  15. ZOLEDRONIC ACID [Suspect]
     Active Substance: ZOLEDRONIC ACID
     Dosage: 4 MG/3 MONTHS
     Route: 065
  16. ZOLEDRONIC ACID [Suspect]
     Active Substance: ZOLEDRONIC ACID
     Dosage: 4 MG/3 MONTHS
  17. ZOLEDRONIC ACID [Suspect]
     Active Substance: ZOLEDRONIC ACID
     Dosage: 4 MG, Q3MO
  18. ZOLEDRONIC ACID [Suspect]
     Active Substance: ZOLEDRONIC ACID
     Dosage: 4 MG, Q3MO
     Route: 065
  19. ZOLEDRONIC ACID [Suspect]
     Active Substance: ZOLEDRONIC ACID
     Dosage: 4 MG, Q3MO
     Route: 065
  20. ZOLEDRONIC ACID [Suspect]
     Active Substance: ZOLEDRONIC ACID
     Dosage: 4 MG, Q3MO
  21. ZOLEDRONIC ACID [Suspect]
     Active Substance: ZOLEDRONIC ACID
     Dosage: 4 MG, Q3MO
     Route: 065
  22. ZOLEDRONIC ACID [Suspect]
     Active Substance: ZOLEDRONIC ACID
     Dosage: 4 MG, Q3MO
  23. ZOLEDRONIC ACID [Suspect]
     Active Substance: ZOLEDRONIC ACID
     Dosage: 4 MG, Q3MO
     Route: 065
  24. ZOLEDRONIC ACID [Suspect]
     Active Substance: ZOLEDRONIC ACID
     Dosage: 4 MG, Q3MO
  25. CAPECITABINE [Suspect]
     Active Substance: CAPECITABINE
     Indication: Product used for unknown indication
     Dosage: 1800 MG, Q12H (FOR 14 DAYS)
     Route: 065
  26. CAPECITABINE [Suspect]
     Active Substance: CAPECITABINE
     Dosage: 1800 MG, Q12H (FOR 14 DAYS)
  27. CAPECITABINE [Suspect]
     Active Substance: CAPECITABINE
     Dosage: 1800 MG, Q12H (FOR 14 DAYS)
     Route: 065
  28. CAPECITABINE [Suspect]
     Active Substance: CAPECITABINE
     Dosage: 1800 MG, Q12H (FOR 14 DAYS)
  29. EVEROLIMUS [Suspect]
     Active Substance: EVEROLIMUS
     Indication: Product used for unknown indication
     Dosage: EVEROLIMUS 10MG/D;EXEMESTANE 25MG/D
  30. EVEROLIMUS [Suspect]
     Active Substance: EVEROLIMUS
     Dosage: EVEROLIMUS 10MG/D;EXEMESTANE 25MG/D
     Route: 065
  31. OLAPARIB [Suspect]
     Active Substance: OLAPARIB
     Indication: Product used for unknown indication
     Dosage: 300 MG, Q12H
     Route: 065
  32. OLAPARIB [Suspect]
     Active Substance: OLAPARIB
     Dosage: 300 MG, Q12H
  33. OLAPARIB [Suspect]
     Active Substance: OLAPARIB
     Dosage: 300 MG, Q12H
     Route: 065
  34. OLAPARIB [Suspect]
     Active Substance: OLAPARIB
     Dosage: 300 MG, Q12H
  35. DOXORUBICIN [Suspect]
     Active Substance: DOXORUBICIN
     Indication: Product used for unknown indication
     Dosage: UNK, Q3W
  36. DOXORUBICIN [Suspect]
     Active Substance: DOXORUBICIN
     Dosage: UNK, Q3W
     Route: 065
  37. EXEMESTANE [Suspect]
     Active Substance: EXEMESTANE
     Indication: Product used for unknown indication
     Dosage: 25 MG, QD
  38. EXEMESTANE [Suspect]
     Active Substance: EXEMESTANE
     Dosage: 25 MG, QD
     Route: 065
  39. EVEROLIMUS [Suspect]
     Active Substance: EVEROLIMUS
     Indication: Product used for unknown indication
     Dosage: EVEROLIMUS 10MG/D;EXEMESTANE 25MG/D
     Route: 065
  40. EVEROLIMUS [Suspect]
     Active Substance: EVEROLIMUS
     Dosage: EVEROLIMUS 10MG/D;EXEMESTANE 25MG/D
  41. EVEROLIMUS [Suspect]
     Active Substance: EVEROLIMUS
     Dosage: EVEROLIMUS 10MG/D;EXEMESTANE 25MG/D
     Route: 065
  42. EVEROLIMUS [Suspect]
     Active Substance: EVEROLIMUS
     Dosage: EVEROLIMUS 10MG/D;EXEMESTANE 25MG/D
  43. FASLODEX [Suspect]
     Active Substance: FULVESTRANT
     Indication: Product used for unknown indication
     Dosage: 500 MG, Q4W
     Route: 065
  44. FASLODEX [Suspect]
     Active Substance: FULVESTRANT
     Dosage: 500 MG, Q4W
  45. FASLODEX [Suspect]
     Active Substance: FULVESTRANT
     Dosage: 500 MG, Q4W
     Route: 065
  46. FASLODEX [Suspect]
     Active Substance: FULVESTRANT
     Dosage: 500 MG, Q4W

REACTIONS (10)
  - Disease progression [Unknown]
  - Stomatitis [Unknown]
  - Pain [Unknown]
  - Dyspnoea [Unknown]
  - Anaemia [Unknown]
  - Bone pain [Unknown]
  - Nausea [Unknown]
  - Fatigue [Unknown]
  - Vomiting [Unknown]
  - Therapeutic product effect incomplete [Unknown]
